FAERS Safety Report 23352226 (Version 1)
Quarter: 2023Q4

REPORT INFORMATION
  Report Type: Spontaneous
  Country: US (occurrence: None)
  Receive Date: 20231229
  Receipt Date: 20231229
  Transmission Date: 20240109
  Serious: No
  Sender: FDA-Public Use
  Company Number: None

PATIENT
  Age: 14 Day
  Sex: Male
  Weight: 5.45 kg

DRUGS (1)
  1. BEYFORTUS [Suspect]
     Active Substance: NIRSEVIMAB-ALIP
     Route: 030

REACTIONS (4)
  - Vaccination error [None]
  - Drug monitoring procedure not performed [None]
  - Product prescribing error [None]
  - Extra dose administered [None]

NARRATIVE: CASE EVENT DATE: 20231110
